FAERS Safety Report 4438759-X (Version None)
Quarter: 2004Q3

REPORT INFORMATION
  Report Type: 
  Country: None (occurrence: None)
  Receive Date: 20040830
  Receipt Date: 20000512
  Transmission Date: 20050211
  Serious: No
  Sender: FDA-Public Use
  Company Number: MP04-076

PATIENT
  Age: 83 Year
  Sex: Male

DRUGS (1)
  1. BACTRIM DS [Suspect]
     Indication: URINARY TRACT INFECTION

REACTIONS (1)
  - CONVULSION [None]
